FAERS Safety Report 17261648 (Version 1)
Quarter: 2020Q1

REPORT INFORMATION
  Report Type: Spontaneous
  Country: US (occurrence: US)
  Receive Date: 20200113
  Receipt Date: 20200113
  Transmission Date: 20200409
  Serious: Yes (Other)
  Sender: FDA-Public Use
  Company Number: US-ROCHE-2457559

PATIENT
  Sex: Male

DRUGS (1)
  1. ACTEMRA [Suspect]
     Active Substance: TOCILIZUMAB
     Indication: ARTHRITIS
     Route: 058
     Dates: start: 20180407

REACTIONS (5)
  - Hepatic enzyme increased [Unknown]
  - Blood bilirubin increased [Unknown]
  - Renal impairment [Unknown]
  - Rash [Unknown]
  - Breast mass [Unknown]
